FAERS Safety Report 8576521-7 (Version None)
Quarter: 2012Q3

REPORT INFORMATION
  Report Type: 
  Country: None (occurrence: None)
  Receive Date: 20120807
  Receipt Date: 20120727
  Transmission Date: 20120928
  Serious: No
  Sender: FDA-Public Use
  Company Number: US-BAYER-2012-076902

PATIENT
  Age: 39 Year
  Sex: Female
  Weight: 74.83 kg

DRUGS (8)
  1. YASMIN [Suspect]
     Indication: CONTRACEPTION
  2. ZOLOFT [Concomitant]
  3. CLARITIN [Concomitant]
  4. ANALGESICS [Concomitant]
  5. DROSPIRENONE AND ETHINYL ESTRADIOL [Suspect]
  6. SYNTHROID [Concomitant]
     Dosage: 25 MCG, UNK
  7. PROTONIX [Concomitant]
  8. ADDERALL 5 [Concomitant]

REACTIONS (1)
  - THROMBOPHLEBITIS SUPERFICIAL [None]
